FAERS Safety Report 9188593 (Version 1)
Quarter: 2013Q1

REPORT INFORMATION
  Report Type: Spontaneous
  Country: CO (occurrence: CO)
  Receive Date: 20130325
  Receipt Date: 20130325
  Transmission Date: 20140127
  Serious: Yes (Death, Hospitalization)
  Sender: FDA-Public Use
  Company Number: CO-SHIRE-ALL1-2013-01153

PATIENT
  Age: 18 Year
  Sex: Male
  Weight: 30 kg

DRUGS (1)
  1. ELAPRASE [Suspect]
     Indication: MUCOPOLYSACCHARIDOSIS II
     Dosage: UNK, UNKNOWN
     Route: 041
     Dates: start: 201301, end: 20130123

REACTIONS (4)
  - Generalised oedema [Unknown]
  - Cardio-respiratory arrest [Fatal]
  - Congestive cardiomyopathy [Unknown]
  - Left ventricular hypertrophy [Unknown]
